FAERS Safety Report 7489491-X (Version None)
Quarter: 2011Q2

REPORT INFORMATION
  Report Type: 
  Country: None (occurrence: None)
  Receive Date: 20110518
  Receipt Date: 20100625
  Transmission Date: 20111010
  Serious: Yes (Other)
  Sender: FDA-Public Use
  Company Number: DE-GENENTECH-318517

PATIENT
  Sex: Male

DRUGS (1)
  1. LUCENTIS [Suspect]
     Indication: AGE-RELATED MACULAR DEGENERATION
     Dosage: UNK
     Route: 031
     Dates: start: 20091113

REACTIONS (4)
  - BLOOD PRESSURE ABNORMAL [None]
  - DEPRESSED MOOD [None]
  - CATARACT [None]
  - VISUAL ACUITY REDUCED [None]
